FAERS Safety Report 5498599-X (Version None)
Quarter: 2007Q4

REPORT INFORMATION
  Report Type: 
  Country: None (occurrence: None)
  Receive Date: 20071024
  Receipt Date: 20071015
  Transmission Date: 20080405
  Serious: Yes (Hospitalization)
  Sender: FDA-Public Use
  Company Number: GXKR2007US08865

PATIENT
  Age: 76 Year
  Sex: Male

DRUGS (10)
  1. PARACETAMOL (NGX)(PARACETAMOL) UNKNOWN [Suspect]
     Indication: HEADACHE
     Dosage: 1.5G -2 G,
  2. PHENACETIN(PHENACETIN) UNKNOWN [Suspect]
     Indication: HEADACHE
     Dosage: 2 G,
  3. ASPIRIN [Suspect]
     Indication: HEADACHE
  4. SULINDAC [Suspect]
     Dosage: 150 MG, BID,
  5. HYDROCHLOROTHIAZIDE [Concomitant]
  6. FUROSEMIDE [Concomitant]
  7. ATENOLOL [Concomitant]
  8. LOSARTAN (LOSARTAN) UNKNOWN [Concomitant]
  9. PANTOPRAZOLE SODIUM (PANTOPRAZOLE SODIUM) UNKNOWN [Concomitant]
  10. ANTACIDS, OTHER COMBINATIONS (NO INGREDIENTS/SUBSTANCES) UNKNOWN [Concomitant]

REACTIONS (8)
  - DRUG ABUSE [None]
  - DRUG TOXICITY [None]
  - GLOMERULAR FILTRATION RATE DECREASED [None]
  - GOUT [None]
  - HYPERTENSION [None]
  - NEPHROPATHY TOXIC [None]
  - RENAL ATROPHY [None]
  - RENAL IMPAIRMENT [None]
